FAERS Safety Report 23295883 (Version 1)
Quarter: 2023Q4

REPORT INFORMATION
  Report Type: Report from Study
  Country: KR (occurrence: KR)
  Receive Date: 20231214
  Receipt Date: 20231214
  Transmission Date: 20240109
  Serious: Yes (Hospitalization, Other)
  Sender: FDA-Public Use
  Company Number: KR-BAYER-2023A174229

PATIENT
  Age: 82 Year
  Sex: Male
  Weight: 57.3 kg

DRUGS (10)
  1. STIVARGA [Suspect]
     Active Substance: REGORAFENIB
     Indication: Malignant melanoma
     Dosage: UNK
     Dates: start: 20210518, end: 20210601
  2. ADEFOVIR DIPIVOXIL [Concomitant]
     Active Substance: ADEFOVIR DIPIVOXIL
     Indication: Hepatitis B
     Dosage: UNK
     Dates: start: 1980, end: 20210601
  3. PREDNISOLONE VALEROACETATE [Concomitant]
     Indication: Urticaria
     Dosage: UNK
     Dates: start: 20210602
  4. PREDNISOLONE VALEROACETATE [Concomitant]
     Indication: Prophylaxis against gastrointestinal ulcer
     Dosage: UNK
     Dates: start: 20210603, end: 20210609
  5. PREDNISOLONE VALEROACETATE [Concomitant]
     Indication: Decreased appetite
     Dosage: UNK
     Dates: start: 20210601
  6. METOCLOPRAMIDE HYDROCHLORIDE [Concomitant]
     Active Substance: METOCLOPRAMIDE HYDROCHLORIDE
     Indication: Urticaria
     Dosage: UNK
     Dates: start: 20210603
  7. MEGESTROL ACETATE [Concomitant]
     Active Substance: MEGESTROL ACETATE
     Indication: Urticaria
     Dosage: UNK
     Dates: start: 20210602, end: 20210602
  8. METHYLPREDNISOLONE [Concomitant]
     Active Substance: METHYLPREDNISOLONE
     Indication: Blood bilirubin increased
     Dosage: UNK
     Dates: start: 20210601
  9. CHLORPHENIRAMINE MALEATE [Concomitant]
     Active Substance: CHLORPHENIRAMINE MALEATE
     Indication: Mineral supplementation
     Dosage: UNK
     Dates: start: 20210602, end: 20210604
  10. CHLORPHENIRAMINE MALEATE [Concomitant]
     Active Substance: CHLORPHENIRAMINE MALEATE
     Indication: Mineral supplementation
     Dosage: UNK
     Dates: start: 20210608, end: 20210608

REACTIONS (9)
  - Pyrexia [Not Recovered/Not Resolved]
  - Pyrexia [Recovered/Resolved]
  - C-reactive protein increased [Recovered/Resolved]
  - Blood bilirubin increased [Recovered/Resolved]
  - Asthenia [Not Recovered/Not Resolved]
  - Decreased appetite [Not Recovered/Not Resolved]
  - Hypertension [Recovered/Resolved]
  - Platelet count decreased [Recovered/Resolved]
  - Off label use [None]

NARRATIVE: CASE EVENT DATE: 20210501
